FAERS Safety Report 8063668-7 (Version None)
Quarter: 2012Q1

REPORT INFORMATION
  Report Type: 
  Country: None (occurrence: None)
  Receive Date: 20120123
  Receipt Date: 20120116
  Transmission Date: 20120608
  Serious: Yes (Hospitalization, Other)
  Sender: FDA-Public Use
  Company Number: GR-JNJFOC-20120106219

PATIENT
  Age: 22 Year
  Sex: Female

DRUGS (5)
  1. BIPERIDEN HYDROCHLORIDE TAB [Concomitant]
     Indication: EXTRAPYRAMIDAL DISORDER
     Route: 065
  2. PALIPERIDONE [Suspect]
     Indication: SCHIZOPHRENIA
     Route: 048
  3. PALIPERIDONE [Suspect]
     Route: 048
  4. PREGABALIN [Concomitant]
     Indication: ANXIETY
     Route: 065
  5. ZIPRASIDONE HYDROCHLORIDE [Concomitant]
     Indication: SCHIZOPHRENIA
     Route: 065

REACTIONS (1)
  - TOURETTE'S DISORDER [None]
